FAERS Safety Report 8244488-7 (Version None)
Quarter: 2012Q1

REPORT INFORMATION
  Report Type: 
  Country: None (occurrence: None)
  Receive Date: 20120329
  Receipt Date: 20120323
  Transmission Date: 20120608
  Serious: Yes (Death)
  Sender: FDA-Public Use
  Company Number: US-PFIZER INC-2012058326

PATIENT
  Sex: Female

DRUGS (1)
  1. TORISEL [Suspect]
     Indication: METASTATIC RENAL CELL CARCINOMA
     Dosage: 25 MG, UNK
     Dates: start: 20110808, end: 20111214

REACTIONS (3)
  - METASTATIC RENAL CELL CARCINOMA [None]
  - DISEASE PROGRESSION [None]
  - DEEP VEIN THROMBOSIS [None]
